FAERS Safety Report 5615507-9 (Version None)
Quarter: 2008Q1

REPORT INFORMATION
  Report Type: 
  Country: None (occurrence: None)
  Receive Date: 20080206
  Receipt Date: 20080205
  Transmission Date: 20080703
  Serious: Yes (Other)
  Sender: FDA-Public Use
  Company Number: A0707386A

PATIENT
  Age: 56 Year
  Sex: Female
  Weight: 54.5 kg

DRUGS (3)
  1. ALLI [Suspect]
     Dates: start: 20080121, end: 20080131
  2. DITROPAN XL [Concomitant]
  3. XANAX [Concomitant]

REACTIONS (3)
  - FAECAL INCONTINENCE [None]
  - RECTAL DISCHARGE [None]
  - RECTAL HAEMORRHAGE [None]
